FAERS Safety Report 6682454-3 (Version None)
Quarter: 2010Q2

REPORT INFORMATION
  Report Type: 
  Country: None (occurrence: None)
  Receive Date: 20100415
  Receipt Date: 20100407
  Transmission Date: 20101027
  Serious: Yes (Death, Life-Threatening)
  Sender: FDA-Public Use
  Company Number: FR-MPIJNJ-2010-02062

PATIENT

DRUGS (5)
  1. VELCADE [Suspect]
     Indication: MULTIPLE MYELOMA
     Dosage: UNK
     Dates: start: 20080418, end: 20080811
  2. DEXAMETHASONE [Concomitant]
     Indication: MULTIPLE MYELOMA
     Dosage: 40 MG, UNK
     Route: 048
     Dates: start: 20080418, end: 20080811
  3. DEXAMETHASONE [Concomitant]
     Dosage: UNK
     Dates: start: 20080825, end: 20081030
  4. ZEFFIX [Concomitant]
     Dosage: UNK
  5. VITABACT [Concomitant]
     Dosage: UNK
     Dates: start: 20080425, end: 20080808

REACTIONS (1)
  - THROMBOCYTOPENIA [None]
